FAERS Safety Report 9015793 (Version 2)
Quarter: 2013Q1

REPORT INFORMATION
  Report Type: Spontaneous
  Country: JP (occurrence: None)
  Receive Date: 20130103
  Receipt Date: 20130129
  Transmission Date: 20140127
  Serious: No
  Sender: FDA-Public Use
  Company Number: JP-1195888

PATIENT
  Age: 47 Year
  Sex: Female
  Weight: 68 kg

DRUGS (4)
  1. TRAVATAN Z [Suspect]
     Indication: GLAUCOMA
     Route: 047
     Dates: start: 20120620, end: 20121004
  2. DINAGEST [Concomitant]
  3. SPIROPENT [Concomitant]
  4. HYALONSAN [Concomitant]

REACTIONS (2)
  - Menorrhagia [None]
  - Drug effect decreased [None]
